FAERS Safety Report 4877119-4 (Version None)
Quarter: 2005Q4

REPORT INFORMATION
  Report Type: 
  Country: None (occurrence: None)
  Receive Date: 20051206
  Receipt Date: 20050808
  Transmission Date: 20060501
  Serious: No
  Sender: FDA-Public Use
  Company Number: USA0508104889

PATIENT
  Age: 46 Year
  Sex: Female

DRUGS (1)
  1. CYMBALTA [Suspect]
     Indication: NEUROPATHY
     Dosage: 60 MG
     Dates: start: 20050701

REACTIONS (3)
  - BURNING SENSATION [None]
  - EMOTIONAL DISORDER [None]
  - FEELING GUILTY [None]
